FAERS Safety Report 23458201 (Version 1)
Quarter: 2024Q1

REPORT INFORMATION
  Report Type: Spontaneous
  Country: US (occurrence: US)
  Receive Date: 20240130
  Receipt Date: 20240130
  Transmission Date: 20240410
  Serious: Yes (Death)
  Sender: FDA-Public Use
  Company Number: US-PFIZER INC-202400028271

PATIENT

DRUGS (1)
  1. CIBINQO [Suspect]
     Active Substance: ABROCITINIB
     Dosage: UNK
     Route: 048

REACTIONS (1)
  - Death [Fatal]
